FAERS Safety Report 20580751 (Version 1)
Quarter: 2022Q1

REPORT INFORMATION
  Report Type: Other
  Country: DE (occurrence: None)
  Receive Date: 20220311
  Receipt Date: 20220311
  Transmission Date: 20220424
  Serious: Yes (Other)
  Sender: FDA-Public Use
  Company Number: DE-ROCHE-3046365

PATIENT
  Sex: Female

DRUGS (6)
  1. OCRELIZUMAB [Suspect]
     Active Substance: OCRELIZUMAB
     Indication: Relapsing-remitting multiple sclerosis
     Route: 065
  2. NABIXIMOLS [Concomitant]
     Active Substance: NABIXIMOLS
  3. BIONTECH-BOOSTER COVID-19 VACCINE [Concomitant]
     Indication: COVID-19 prophylaxis
     Route: 065
  4. LEVETIRACETAM [Concomitant]
     Active Substance: LEVETIRACETAM
  5. TENOFOVIR [Concomitant]
     Active Substance: TENOFOVIR
  6. BACLOFEN [Concomitant]
     Active Substance: BACLOFEN

REACTIONS (3)
  - Pericardial effusion [Unknown]
  - Skin reaction [Unknown]
  - Pruritus [Unknown]
